FAERS Safety Report 5026837-6 (Version None)
Quarter: 2006Q2

REPORT INFORMATION
  Report Type: 
  Country: None (occurrence: None)
  Receive Date: 20060501
  Receipt Date: 20060207
  Transmission Date: 20061013
  Serious: No
  Sender: FDA-Public Use
  Company Number: 200610733BWH

PATIENT
  Age: 42 Year
  Sex: Male
  Weight: 108.8633 kg

DRUGS (3)
  1. NEXAVAR [Suspect]
     Indication: RENAL CELL CARCINOMA STAGE UNSPECIFIED
     Dosage: 400 MG, BID, ORAL
     Route: 048
     Dates: start: 20060131
  2. COUMADIN [Concomitant]
  3. INTERLEUKIN [Concomitant]

REACTIONS (4)
  - ARTHRALGIA [None]
  - PAIN IN EXTREMITY [None]
  - SKIN DISCOLOURATION [None]
  - STOMACH DISCOMFORT [None]
